FAERS Safety Report 9122076 (Version 1)
Quarter: 2013Q1

REPORT INFORMATION
  Report Type: Report from Study
  Country: CN (occurrence: CN)
  Receive Date: 20130114
  Receipt Date: 20130114
  Transmission Date: 20140127
  Serious: Yes (Life-Threatening, Other)
  Sender: FDA-Public Use
  Company Number: CN-GE HEALTHCARE MEDICAL DIAGNOSTICS-VISP-NO-1211S-0519

PATIENT
  Age: 72 Year
  Sex: Male
  Weight: 90 kg

DRUGS (2)
  1. VISIPAQUE [Suspect]
     Indication: CORONARY ARTERY DISEASE
     Route: 013
     Dates: start: 20120604, end: 20120604
  2. VISIPAQUE [Suspect]
     Indication: DIAGNOSTIC PROCEDURE

REACTIONS (11)
  - Hypersensitivity [Recovered/Resolved]
  - Pyrexia [Recovered/Resolved]
  - Discomfort [Recovered/Resolved]
  - Blood pressure decreased [Recovered/Resolved]
  - Conjunctival hyperaemia [Recovered/Resolved]
  - Vomiting [Recovered/Resolved]
  - Feeling cold [Recovered/Resolved]
  - Chills [Recovered/Resolved]
  - Skin reaction [Recovered/Resolved]
  - Arteriospasm coronary [Recovered/Resolved]
  - Electrocardiogram ST segment elevation [Recovered/Resolved]
